FAERS Safety Report 7295928-1 (Version None)
Quarter: 2011Q1

REPORT INFORMATION
  Report Type: 
  Country: None (occurrence: None)
  Receive Date: 20110216
  Receipt Date: 20110211
  Transmission Date: 20110831
  Serious: Yes (Other)
  Sender: FDA-Public Use
  Company Number: US-AMGEN-QUU413303

PATIENT
  Age: 35 Year
  Sex: Male

DRUGS (3)
  1. CORTICOSTEROID NOS [Concomitant]
     Dosage: UNK UNK, UNK
     Dates: start: 20100128
  2. NPLATE [Suspect]
     Dates: end: 20100401
  3. NPLATE [Suspect]
     Indication: IDIOPATHIC THROMBOCYTOPENIC PURPURA
     Dosage: 100 A?G, UNK
     Dates: start: 20100219

REACTIONS (2)
  - PNEUMOCYSTIS JIROVECI PNEUMONIA [None]
  - DRUG INEFFECTIVE [None]
